FAERS Safety Report 5586101-3 (Version None)
Quarter: 2008Q1

REPORT INFORMATION
  Report Type: 
  Country: None (occurrence: None)
  Receive Date: 20080109
  Receipt Date: 20080104
  Transmission Date: 20080703
  Serious: Yes (Hospitalization)
  Sender: FDA-Public Use
  Company Number: ES-MERCK-0801ESP00004

PATIENT
  Sex: Male

DRUGS (2)
  1. INVANZ [Suspect]
     Indication: NEUROPATHIC ULCER
     Route: 065
  2. INVANZ [Suspect]
     Indication: SKIN ULCER
     Route: 065

REACTIONS (2)
  - CONFUSIONAL STATE [None]
  - DYSARTHRIA [None]
